FAERS Safety Report 6611205-3 (Version None)
Quarter: 2010Q1

REPORT INFORMATION
  Report Type: 
  Country: None (occurrence: None)
  Receive Date: 20100303
  Receipt Date: 20100216
  Transmission Date: 20100710
  Serious: Yes (Hospitalization, Other)
  Sender: FDA-Public Use
  Company Number: US-ELI_LILLY_AND_COMPANY-US200910006786

PATIENT
  Sex: Female

DRUGS (7)
  1. FORTEO [Suspect]
     Indication: OSTEOPOROSIS
     Dosage: 20 UG, DAILY (1/D)
     Dates: start: 20080101, end: 20090101
  2. NEXIUM [Concomitant]
     Dosage: 40 MG, UNK
  3. LIPITOR [Concomitant]
     Dosage: 40 MG, UNK
  4. NEURONTIN [Concomitant]
     Dosage: 300 MG, 3/D
  5. XANAX [Concomitant]
     Dosage: UNK, AS NEEDED
  6. RESTORIL [Concomitant]
     Dosage: UNK, AS NEEDED
  7. HYDROCODONE [Concomitant]
     Indication: PAIN

REACTIONS (5)
  - DIARRHOEA [None]
  - PNEUMONIA ASPIRATION [None]
  - PULMONARY FIBROSIS [None]
  - SEVERE ACUTE RESPIRATORY SYNDROME [None]
  - VOMITING [None]
